FAERS Safety Report 9275532 (Version 8)
Quarter: 2014Q1

REPORT INFORMATION
  Report Type: Spontaneous
  Country: US (occurrence: US)
  Receive Date: 20130507
  Receipt Date: 20140116
  Transmission Date: 20141002
  Serious: Yes (Other)
  Sender: FDA-Public Use
  Company Number: US-PFIZER INC-2013139901

PATIENT
  Age: 59 Year
  Sex: Female
  Weight: 82.09 kg

DRUGS (20)
  1. SUTENT [Suspect]
     Indication: RENAL CELL CARCINOMA
     Dosage: 12.5 MG, UNK
     Dates: start: 20130501
  2. SUTENT [Suspect]
     Dosage: 25 MG, UNK
     Dates: start: 20130502
  3. SUTENT [Suspect]
     Dosage: 50 MG, UNK FOR A WEEK
  4. SUTENT [Suspect]
     Dosage: 37.5 MG, UNK
  5. SUTENT [Suspect]
     Dosage: 50 MG, CYCLIC (50 MG ONE DAY ALTERNATING WITH 37.5 MG FOR 2 DAYS)
     Dates: start: 201305
  6. SUTENT [Suspect]
     Dosage: 37.5 MG, CYCLIC (50 MG ONE DAY ALTERNATING WITH 37.5 MG FOR 2 DAYS)
  7. SUTENT [Suspect]
     Dosage: 37.5 MG, DAILY
  8. HYDROCODONE [Concomitant]
     Dosage: UNK
  9. METHOCARBAMOL [Concomitant]
     Dosage: UNK
  10. PHENERGAN [Concomitant]
     Dosage: UNK
  11. FLINTSTONE VITAMINS W/IRON [Concomitant]
     Dosage: UNK
  12. LEVODOPA-CARBIDOPA [Concomitant]
     Dosage: UNK
  13. KLONOPIN [Concomitant]
     Indication: RESTLESS LEGS SYNDROME
     Dosage: UNK
  14. VITAMIN B [Concomitant]
     Dosage: UNK
     Route: 060
  15. CALCIUM CARBONATE WITH D [Concomitant]
     Dosage: UNK
  16. OSTEO BI-FLEX [Concomitant]
     Dosage: UNK
  17. FERROUS FUMARATE [Concomitant]
     Dosage: UNK
  18. GABAPENTIN [Concomitant]
     Indication: RESTLESS LEGS SYNDROME
     Dosage: UNK
  19. PROBIOTICS [Concomitant]
     Dosage: UNK
  20. FOLIC ACID [Concomitant]
     Dosage: UNK

REACTIONS (36)
  - Eye haemorrhage [Recovering/Resolving]
  - Nail bed bleeding [Not Recovered/Not Resolved]
  - Intentional drug misuse [Recovering/Resolving]
  - Retinal detachment [Unknown]
  - Sinus headache [Recovering/Resolving]
  - Fatigue [Not Recovered/Not Resolved]
  - Blood pressure increased [Recovering/Resolving]
  - Diarrhoea [Recovered/Resolved]
  - Eyelid pain [Recovered/Resolved]
  - Blister [Recovered/Resolved]
  - Dry eye [Recovered/Resolved]
  - Eye pruritus [Not Recovered/Not Resolved]
  - Blood blister [Recovering/Resolving]
  - Generalised erythema [Recovered/Resolved]
  - Dysgeusia [Recovering/Resolving]
  - Sleep disorder [Recovering/Resolving]
  - Platelet count increased [Recovering/Resolving]
  - Weight decreased [Recovering/Resolving]
  - Capillary disorder [Unknown]
  - Musculoskeletal chest pain [Unknown]
  - Chest pain [Unknown]
  - Back pain [Recovered/Resolved]
  - Petechiae [Recovered/Resolved]
  - Eyelids pruritus [Not Recovered/Not Resolved]
  - Eyelid disorder [Unknown]
  - Dehydration [Not Recovered/Not Resolved]
  - Platelet count decreased [Recovering/Resolving]
  - Blood electrolytes abnormal [Unknown]
  - Feeling abnormal [Unknown]
  - Asthenia [Not Recovered/Not Resolved]
  - Nausea [Recovered/Resolved]
  - Vomiting [Recovered/Resolved]
  - Photopsia [Recovering/Resolving]
  - Blood thyroid stimulating hormone abnormal [Unknown]
  - Capillary fragility [Recovering/Resolving]
  - Diarrhoea [Recovered/Resolved]
